FAERS Safety Report 22061502 (Version 1)
Quarter: 2023Q1

REPORT INFORMATION
  Report Type: Spontaneous
  Country: JP (occurrence: JP)
  Receive Date: 20230304
  Receipt Date: 20230304
  Transmission Date: 20230418
  Serious: Yes (Other)
  Sender: FDA-Public Use
  Company Number: JP-ABBVIE-4135262

PATIENT
  Sex: Female

DRUGS (1)
  1. HUMIRA [Suspect]
     Active Substance: ADALIMUMAB
     Indication: Maternal exposure during pregnancy
     Route: 064

REACTIONS (4)
  - Cerebral haemorrhage [Not Recovered/Not Resolved]
  - Foetal exposure during pregnancy [Unknown]
  - Haematemesis [Unknown]
  - Hydrocephalus [Unknown]
